FAERS Safety Report 8849175 (Version 2)
Quarter: 2012Q4

REPORT INFORMATION
  Report Type: 
  Country: US (occurrence: US)
  Receive Date: 20121019
  Receipt Date: 20121106
  Transmission Date: 20130627
  Serious: No
  Sender: FDA-Public Use
  Company Number: PHEH2012US020517

PATIENT
  Age: 63 Year
  Sex: Male
  Weight: 90.7 kg

DRUGS (8)
  1. TASIGNA [Suspect]
     Indication: CHRONIC MYELOID LEUKAEMIA
     Dosage: 300 mg, BID
     Route: 048
     Dates: start: 20120702
  2. TASIGNA [Suspect]
     Dosage: 200 mg, BID
     Route: 048
  3. ASPIRIN [Concomitant]
  4. LOSARTAN [Concomitant]
  5. ZOCOR [Concomitant]
  6. METOPROLOL [Concomitant]
  7. TIMOPTIC [Concomitant]
  8. RAMIPRIL [Concomitant]

REACTIONS (6)
  - Cough [Recovered/Resolved]
  - Decreased appetite [Recovered/Resolved]
  - Chills [Recovered/Resolved]
  - Hyperhidrosis [Recovered/Resolved]
  - Weight decreased [Recovered/Resolved]
  - Liver function test abnormal [Recovered/Resolved]
